FAERS Safety Report 18825890 (Version 4)
Quarter: 2021Q2

REPORT INFORMATION
  Report Type: Report from Study
  Country: US (occurrence: US)
  Receive Date: 20210202
  Receipt Date: 20210430
  Transmission Date: 20210717
  Serious: No
  Sender: FDA-Public Use
  Company Number: US-TAKEDA-2021TUS004891

PATIENT
  Sex: Female
  Weight: 105 kg

DRUGS (39)
  1. PATANASE [Concomitant]
     Active Substance: OLOPATADINE HYDROCHLORIDE
  2. DILTIAZEM. [Concomitant]
     Active Substance: DILTIAZEM
  3. TAMOXIFEN CITRATE. [Concomitant]
     Active Substance: TAMOXIFEN CITRATE
  4. SPIRONOLACTONE. [Concomitant]
     Active Substance: SPIRONOLACTONE
  5. MELATONIN [Concomitant]
     Active Substance: MELATONIN
  6. NASAL SPRAY II [Concomitant]
  7. IPRATROPIUM BROMIDE. [Concomitant]
     Active Substance: IPRATROPIUM BROMIDE
  8. CUVITRU [Suspect]
     Active Substance: HUMAN IMMUNOGLOBULIN G
     Indication: IMMUNODEFICIENCY COMMON VARIABLE
     Dosage: 10 GRAM, 1/WEEK
     Route: 058
     Dates: start: 20170810
  9. LIDOCAINE/PRILOCAINE [Concomitant]
     Active Substance: LIDOCAINE\PRILOCAINE
  10. ACETAMINOFEN + CODEINA [Concomitant]
  11. LORAZEPAM. [Concomitant]
     Active Substance: LORAZEPAM
  12. LOVAZA [Concomitant]
     Active Substance: OMEGA-3-ACID ETHYL ESTERS
  13. BENAZEPRIL [Concomitant]
     Active Substance: BENAZEPRIL HYDROCHLORIDE
  14. XOPENEX [Concomitant]
     Active Substance: LEVALBUTEROL HYDROCHLORIDE
  15. ZYRTEC [Concomitant]
     Active Substance: CETIRIZINE HYDROCHLORIDE
  16. ACETAMINOPHEN. [Concomitant]
     Active Substance: ACETAMINOPHEN
  17. EPINEPHRINE. [Concomitant]
     Active Substance: EPINEPHRINE
  18. NOVOLOG [Concomitant]
     Active Substance: INSULIN ASPART
  19. MUCINEX [Concomitant]
     Active Substance: GUAIFENESIN
  20. KETOCONAZOLE. [Concomitant]
     Active Substance: KETOCONAZOLE
  21. MSM [METHYLSULFONYLMETHANE] [Concomitant]
  22. MAGNESIUM OXIDE. [Concomitant]
     Active Substance: MAGNESIUM OXIDE
  23. LEVEMIR [Concomitant]
     Active Substance: INSULIN DETEMIR
     Dosage: UNK
  24. REFRESH OPTIVE [Concomitant]
     Active Substance: CARBOXYMETHYLCELLULOSE SODIUM\GLYCERIN
  25. VICTOZA [Concomitant]
     Active Substance: LIRAGLUTIDE
  26. RESTASIS [Concomitant]
     Active Substance: CYCLOSPORINE
  27. VITAMINS NOS [Concomitant]
     Active Substance: VITAMINS
  28. VITAMIN B [Concomitant]
     Active Substance: VITAMIN B
  29. NASONEX [Concomitant]
     Active Substance: MOMETASONE FUROATE
  30. FIBER LAX [Concomitant]
     Active Substance: CALCIUM POLYCARBOPHIL
  31. ALVESCO [Concomitant]
     Active Substance: CICLESONIDE
  32. BIOTIN [Concomitant]
     Active Substance: BIOTIN
  33. CUVITRU [Suspect]
     Active Substance: HUMAN IMMUNOGLOBULIN G
     Indication: IMMUNODEFICIENCY COMMON VARIABLE
  34. NASALCROM [Concomitant]
     Active Substance: CROMOLYN SODIUM
  35. DIPHENHYDRAMINE. [Concomitant]
     Active Substance: DIPHENHYDRAMINE
  36. LEVEMIR [Concomitant]
     Active Substance: INSULIN DETEMIR
  37. VITAMIN D3 [Concomitant]
     Active Substance: CHOLECALCIFEROL
  38. SINGULAIR [Concomitant]
     Active Substance: MONTELUKAST SODIUM
  39. BENADRYL [ACRIVASTINE] [Concomitant]
     Active Substance: ACRIVASTINE

REACTIONS (8)
  - Ear discomfort [Recovered/Resolved]
  - Needle issue [Unknown]
  - Dizziness [Recovered/Resolved]
  - Infusion site pruritus [Unknown]
  - Ear infection [Unknown]
  - Blood glucose decreased [Unknown]
  - Infusion site rash [Unknown]
  - Limb discomfort [Recovered/Resolved]
